FAERS Safety Report 7928646-4 (Version None)
Quarter: 2011Q4

REPORT INFORMATION
  Report Type: 
  Country: None (occurrence: None)
  Receive Date: 20111118
  Receipt Date: 20111110
  Transmission Date: 20120403
  Serious: Yes (Other)
  Sender: FDA-Public Use
  Company Number: ZA-ABBOTT-11P-143-0873238-00

PATIENT
  Age: 34 Year
  Sex: Female

DRUGS (3)
  1. TRIGASTON [Concomitant]
     Indication: CONTRACEPTION
  2. LOPINAVIR/RITONAVIR [Suspect]
     Indication: HIV INFECTION
     Dosage: TAKEN AT PRECONCEPTION, CONCEPTION, AND FIRST TRIMESTER
     Route: 048
     Dates: start: 20101217
  3. RALTEGRAVIR [Concomitant]
     Indication: HIV INFECTION
     Dosage: TAKEN AT PRECONCEPTION, CONCEPTION, AND FIRST TRIMESTER
     Route: 048
     Dates: start: 20101217

REACTIONS (1)
  - ABORTION INDUCED [None]
